FAERS Safety Report 6252004-4 (Version None)
Quarter: 2009Q2

REPORT INFORMATION
  Report Type: 
  Country: None (occurrence: None)
  Receive Date: 20090630
  Receipt Date: 20060428
  Transmission Date: 20091009
  Serious: Yes (Hospitalization)
  Sender: FDA-Public Use
  Company Number: US-ROCHE-638477

PATIENT
  Sex: Male

DRUGS (15)
  1. ENFUVIRTIDE [Suspect]
     Route: 065
     Dates: start: 20050326, end: 20060417
  2. KALETRA [Concomitant]
     Dates: start: 20050526, end: 20060417
  3. KALETRA [Concomitant]
     Dates: start: 20060803, end: 20070514
  4. REYATAZ [Concomitant]
     Dosage: FREQUENCY: QD.
     Dates: start: 20050526, end: 20060417
  5. REYATAZ [Concomitant]
     Dosage: FREQUENCY: QD.
     Dates: start: 20060817, end: 20070514
  6. TRUVADA [Concomitant]
     Dosage: FREQUENCY: QD.
     Dates: start: 20050603, end: 20060417
  7. EPZICOM [Concomitant]
     Dosage: FREQUENCY: QD.
     Dates: start: 20060803, end: 20070514
  8. EPZICOM [Concomitant]
     Dosage: FREQUENCY: QD.
     Dates: start: 20070924, end: 20080814
  9. ISENTRESS [Concomitant]
     Dates: start: 20070402, end: 20080814
  10. NORVIR [Concomitant]
     Dates: start: 20070514, end: 20080814
  11. PREZISTA [Concomitant]
     Dates: start: 20070514, end: 20080814
  12. ETRAVIRINE [Concomitant]
     Dosage: TRADE NAME OF DRUG: INTELENCE.
     Dates: start: 20070514, end: 20080814
  13. BACTRIM DS [Concomitant]
     Dates: start: 20050515, end: 20050101
  14. ZITHROMAX [Concomitant]
     Dosage: FREQUENCY: QD. STOP DATE: UNK/2007.
     Dates: start: 20070924
  15. MEPRON [Concomitant]
     Dosage: FREQUENCY: QD.
     Dates: start: 20080114, end: 20080814

REACTIONS (1)
  - SCHIZOAFFECTIVE DISORDER [None]
